FAERS Safety Report 12809839 (Version 1)
Quarter: 2016Q4

REPORT INFORMATION
  Report Type: Spontaneous
  Country: US (occurrence: US)
  Receive Date: 20161005
  Receipt Date: 20161005
  Transmission Date: 20170207
  Serious: Yes (Other)
  Sender: FDA-Public Use
  Company Number: US-ADAREPHARM-2015-US-000574

PATIENT
  Age: 41 Year
  Sex: Male

DRUGS (4)
  1. KCL [Suspect]
     Active Substance: POTASSIUM CHLORIDE
     Indication: HYPOKALAEMIA
  2. ANTITHYROID MEDICATIONS [Concomitant]
     Indication: BASEDOW^S DISEASE
  3. METHIMAZOLE. [Concomitant]
     Active Substance: METHIMAZOLE
  4. PROPRANOLOL [Concomitant]
     Active Substance: PROPRANOLOL\PROPRANOLOL HYDROCHLORIDE

REACTIONS (2)
  - Hyperkalaemia [Unknown]
  - Electrocardiogram abnormal [Unknown]
